FAERS Safety Report 5118384-8 (Version None)
Quarter: 2006Q4

REPORT INFORMATION
  Report Type: 
  Country: None (occurrence: None)
  Receive Date: 20061002
  Receipt Date: 20060315
  Transmission Date: 20070319
  Serious: Yes (Death, Hospitalization, Disabling, Other)
  Sender: FDA-Public Use
  Company Number: US-BAYER-200611691BWH

PATIENT
  Age: 59 Year
  Sex: Male
  Weight: 61 kg

DRUGS (8)
  1. NEXAVAR [Suspect]
     Indication: RENAL CELL CARCINOMA STAGE UNSPECIFIED
     Dosage: TOTAL DAILY DOSE: 800 MG  UNIT DOSE: 200 MG
     Route: 048
     Dates: start: 20060113, end: 20060101
  2. NEXAVAR [Suspect]
     Dosage: UNIT DOSE: 200 MG
     Route: 048
     Dates: start: 20060101, end: 20060207
  3. TOREMIFENE [Concomitant]
     Indication: METASTATIC NEOPLASM
     Dosage: TOTAL DAILY DOSE: 360 MG
     Dates: start: 20051026, end: 20051201
  4. XELODA [Concomitant]
     Dates: start: 20051214, end: 20051221
  5. COUMADIN [Concomitant]
  6. OXYCONTIN [Concomitant]
     Indication: BACK PAIN
     Dosage: AS USED: 20-30 MG
  7. OXYCONTIN [Concomitant]
  8. DUODERM [Concomitant]
     Indication: PROPHYLAXIS

REACTIONS (43)
  - ABASIA [None]
  - ANAEMIA [None]
  - ANOREXIA [None]
  - ASTHENIA [None]
  - BLISTER [None]
  - BLOOD ALBUMIN DECREASED [None]
  - BLOOD UREA INCREASED [None]
  - CANCER PAIN [None]
  - CARDIAC MURMUR [None]
  - CONSTIPATION [None]
  - CYSTITIS RADIATION [None]
  - DEPRESSION [None]
  - DEVICE BREAKAGE [None]
  - DRY SKIN [None]
  - DYSGRAPHIA [None]
  - DYSPHONIA [None]
  - DYSPNOEA [None]
  - DYSPNOEA EXERTIONAL [None]
  - FATIGUE [None]
  - HAEMORRHAGE [None]
  - HYPOAESTHESIA [None]
  - HYPONATRAEMIA [None]
  - INADEQUATE ANALGESIA [None]
  - LETHARGY [None]
  - MALIGNANT NEOPLASM PROGRESSION [None]
  - MALNUTRITION [None]
  - METASTASES TO BONE [None]
  - MICTURITION URGENCY [None]
  - NECK PAIN [None]
  - PAIN IN EXTREMITY [None]
  - PARAESTHESIA [None]
  - PHARYNGOLARYNGEAL PAIN [None]
  - PROTEIN TOTAL DECREASED [None]
  - RASH [None]
  - RENAL CANCER METASTATIC [None]
  - RENAL CELL CARCINOMA STAGE UNSPECIFIED [None]
  - SOMNOLENCE [None]
  - STOMATITIS [None]
  - TENDERNESS [None]
  - URINARY TRACT INFECTION [None]
  - VENTRICULAR DYSFUNCTION [None]
  - VOMITING [None]
  - WEIGHT DECREASED [None]
